FAERS Safety Report 6518532-9 (Version None)
Quarter: 2009Q4

REPORT INFORMATION
  Report Type: 
  Country: None (occurrence: None)
  Receive Date: 20091226
  Receipt Date: 20091218
  Transmission Date: 20100525
  Serious: Yes (Hospitalization, Other)
  Sender: FDA-Public Use
  Company Number: FR-JNJFOC-20091008295

PATIENT
  Sex: Male
  Weight: 68 kg

DRUGS (8)
  1. RISPERDAL CONSTA [Suspect]
     Indication: DRUG USE FOR UNKNOWN INDICATION
     Route: 030
  2. RISPERDAL CONSTA [Suspect]
     Route: 030
  3. RISPERDAL CONSTA [Suspect]
     Route: 030
  4. RISPERDAL [Concomitant]
     Route: 048
  5. DEPAKOTE [Concomitant]
     Route: 048
  6. LEPTICUR [Concomitant]
     Route: 048
  7. LOXAPAC [Concomitant]
     Route: 048
  8. PRAZEPAM [Concomitant]
     Route: 048

REACTIONS (2)
  - INAPPROPRIATE SCHEDULE OF DRUG ADMINISTRATION [None]
  - OVERDOSE [None]
